FAERS Safety Report 5309202-3 (Version None)
Quarter: 2007Q2

REPORT INFORMATION
  Report Type: 
  Country: None (occurrence: None)
  Receive Date: 20070423
  Receipt Date: 20070405
  Transmission Date: 20071010
  Serious: Yes (Other)
  Sender: FDA-Public Use
  Company Number: C-07-0010

PATIENT
  Age: 61 Year
  Sex: Female
  Weight: 37.195 kg

DRUGS (5)
  1. LITHIUM CITRATE [Suspect]
     Indication: BIPOLAR DISORDER
     Dosage: 2.5, 3.5 AND 3.6 ML/DAY; ORALLY
     Route: 048
     Dates: start: 20061101, end: 20061201
  2. CLONIDINE [Concomitant]
  3. PREDNISONE TAB [Concomitant]
  4. PROGRAF [Concomitant]
  5. RAPAMUNE [Concomitant]

REACTIONS (3)
  - ANTIPSYCHOTIC DRUG LEVEL BELOW THERAPEUTIC [None]
  - ANTIPSYCHOTIC DRUG LEVEL INCREASED [None]
  - TREMOR [None]
